FAERS Safety Report 8379095-9 (Version None)
Quarter: 2012Q2

REPORT INFORMATION
  Report Type: 
  Country: None (occurrence: None)
  Receive Date: 20120522
  Receipt Date: 20120522
  Transmission Date: 20120825
  Serious: Yes (Life-Threatening)
  Sender: FDA-Public Use
  Company Number: None

PATIENT
  Age: 53 Year
  Sex: Male
  Weight: 108.6 kg

DRUGS (1)
  1. VANCOMYCIN [Suspect]
     Dosage: 1750 MG OTHER IV
     Route: 042
     Dates: start: 20120506, end: 20120509

REACTIONS (3)
  - RENAL FAILURE ACUTE [None]
  - RENAL TUBULAR NECROSIS [None]
  - HYPOTENSION [None]
